FAERS Safety Report 5977127-6 (Version None)
Quarter: 2008Q4

REPORT INFORMATION
  Report Type: 
  Country: None (occurrence: None)
  Receive Date: 20081203
  Receipt Date: 20081125
  Transmission Date: 20090506
  Serious: Yes (Other)
  Sender: FDA-Public Use
  Company Number: US-BRACCO-002221

PATIENT
  Sex: Female
  Weight: 86 kg

DRUGS (29)
  1. PROHANCE [Suspect]
     Indication: NUCLEAR MAGNETIC RESONANCE IMAGING BRAIN
     Route: 065
     Dates: start: 20040716, end: 20040716
  2. PROHANCE [Suspect]
     Indication: ANGIOGRAM
     Route: 065
     Dates: start: 20040716, end: 20040716
  3. OMNISCAN [Suspect]
     Indication: NUCLEAR MAGNETIC RESONANCE IMAGING
     Route: 065
     Dates: start: 20030319, end: 20030319
  4. OMNISCAN [Suspect]
     Indication: NUCLEAR MAGNETIC RESONANCE IMAGING ABDOMINAL
     Route: 065
     Dates: start: 20050128, end: 20050128
  5. OMNISCAN [Suspect]
     Route: 065
     Dates: start: 20060301, end: 20060301
  6. ALPRAZOLAM [Concomitant]
     Route: 065
     Dates: start: 20021101, end: 20031001
  7. CALCIUM [Concomitant]
     Route: 065
     Dates: start: 20021101, end: 20031001
  8. ESTROGEN NOS [Concomitant]
     Route: 065
     Dates: end: 20030101
  9. FERROUS SULFATE TAB [Concomitant]
     Route: 065
     Dates: start: 20021101, end: 20041101
  10. MAGNESIUM OXIDE [Concomitant]
     Route: 065
     Dates: start: 20021101, end: 20030101
  11. PREDNISONE TAB [Concomitant]
     Route: 065
     Dates: start: 20021101, end: 20030101
  12. VITAMINS [Concomitant]
     Route: 065
     Dates: start: 20021101, end: 20030101
  13. LABETALOL HCL [Concomitant]
     Route: 065
     Dates: start: 20021101
  14. PRAVASTATIN [Concomitant]
     Route: 065
     Dates: start: 20021101, end: 20060501
  15. SODIUM BICARBONATE [Concomitant]
     Route: 065
     Dates: start: 20021101, end: 20030101
  16. NEORAL [Concomitant]
     Route: 065
     Dates: start: 20021101, end: 20030101
  17. CLONIDINE [Concomitant]
     Route: 065
     Dates: start: 20021101, end: 20030101
  18. VASOTEC [Concomitant]
     Route: 065
     Dates: start: 20021101, end: 20030101
  19. ZOFRAN [Concomitant]
     Route: 065
     Dates: start: 20021101, end: 20030101
  20. CELLCEPT [Concomitant]
     Route: 065
     Dates: start: 20021101, end: 20030101
  21. NORVASC [Concomitant]
     Route: 065
     Dates: start: 20021201, end: 20041101
  22. LASIX [Concomitant]
     Route: 065
  23. EPOETIN ALFA [Concomitant]
     Dosage: 7500 (20000)
     Route: 065
     Dates: start: 20041201, end: 20060501
  24. TUMS [Concomitant]
     Route: 065
     Dates: start: 20031001, end: 20060501
  25. COUMADIN [Concomitant]
     Route: 065
     Dates: start: 20031001, end: 20060501
  26. PLAVIX [Concomitant]
     Route: 065
     Dates: start: 20040701, end: 20060501
  27. NEURONTIN [Concomitant]
     Dosage: 200-300 MG
     Route: 065
     Dates: start: 20050601, end: 20060501
  28. RENAGEL [Concomitant]
     Route: 065
     Dates: start: 20040701, end: 20060501
  29. CONTRAST MEDIA [Concomitant]
     Indication: COMPUTERISED TOMOGRAM
     Route: 065
     Dates: start: 20021014, end: 20021014

REACTIONS (2)
  - GRANULOMA [None]
  - NEPHROGENIC SYSTEMIC FIBROSIS [None]
